FAERS Safety Report 23797741 (Version 2)
Quarter: 2024Q2

REPORT INFORMATION
  Report Type: Spontaneous
  Country: IT (occurrence: IT)
  Receive Date: 20240430
  Receipt Date: 20240513
  Transmission Date: 20240716
  Serious: Yes (Other)
  Sender: FDA-Public Use
  Company Number: IT-002147023-NVSC2024IT089311

PATIENT
  Age: 60 Year

DRUGS (5)
  1. SIPONIMOD [Suspect]
     Active Substance: SIPONIMOD
     Indication: Multiple sclerosis
     Dosage: 2 MG, QD
     Route: 065
     Dates: start: 202201
  2. CYMBALTA [Concomitant]
     Active Substance: DULOXETINE HYDROCHLORIDE
     Indication: Product used for unknown indication
     Dosage: 60 MG (1 CAPSULE)
     Route: 065
  3. LIORESAL [Concomitant]
     Active Substance: BACLOFEN
     Indication: Product used for unknown indication
     Dosage: 25 MG (1 TABLET X 3 DAILY)
     Route: 065
  4. ACETAMINOPHEN\OXYCODONE HYDROCHLORIDE [Concomitant]
     Active Substance: ACETAMINOPHEN\OXYCODONE HYDROCHLORIDE
     Indication: Product used for unknown indication
     Dosage: UNK (AS NEEDED)
     Route: 065
  5. TRIAZOLAM [Concomitant]
     Active Substance: TRIAZOLAM
     Indication: Product used for unknown indication
     Dosage: UNK (IN THE EVENING)
     Route: 065

REACTIONS (4)
  - Sepsis [Not Recovered/Not Resolved]
  - Pyelonephritis acute [Not Recovered/Not Resolved]
  - Escherichia infection [Unknown]
  - Lithiasis [Unknown]

NARRATIVE: CASE EVENT DATE: 20240417
